FAERS Safety Report 5983958-9 (Version None)
Quarter: 2008Q4

REPORT INFORMATION
  Report Type: 
  Country: None (occurrence: None)
  Receive Date: 20081126
  Receipt Date: 20080229
  Transmission Date: 20090506
  Serious: Yes (Hospitalization)
  Sender: FDA-Public Use
  Company Number: 2008BH001841

PATIENT
  Age: 59 Year
  Sex: Male

DRUGS (32)
  1. DIANEAL [Suspect]
     Indication: PERITONEAL DIALYSIS
     Dosage: 18 L;EVERY DAY;IP
     Route: 033
     Dates: start: 20060309
  2. LASIX [Suspect]
     Indication: BLOOD PRESSURE
     Dates: end: 20080101
  3. PHOSLO [Concomitant]
  4. SENSIPAR [Concomitant]
  5. LYRICA [Concomitant]
  6. ARANESP [Concomitant]
  7. MIRALAX [Concomitant]
  8. DITECH ZN [Concomitant]
  9. VYTORIN [Concomitant]
  10. REGLEN [Concomitant]
  11. PHOSPHENOL [Concomitant]
  12. IMODIUM [Concomitant]
  13. VENIFER [Concomitant]
  14. GINKGO BILOBA [Concomitant]
  15. SARAFEM [Concomitant]
  16. DRISDOL [Concomitant]
  17. MECLIZINE [Concomitant]
  18. HYZAAR [Concomitant]
  19. ALTACE [Concomitant]
  20. AMARYL [Concomitant]
  21. LANTUS [Concomitant]
  22. HUMALOG [Concomitant]
  23. ALPHA LIPOIC ACID [Concomitant]
  24. SYNTHROID [Concomitant]
  25. PROTONIX [Concomitant]
  26. HECTOROL [Concomitant]
  27. METAMUCIL [Concomitant]
  28. TESTOSTERONE [Concomitant]
  29. ZOLOFT [Concomitant]
  30. CATAPRES /UNK/ [Concomitant]
  31. SODIUM BICARD [Concomitant]
  32. RESTORIL [Concomitant]

REACTIONS (1)
  - HYPOTENSION [None]
